FAERS Safety Report 13251567 (Version 1)
Quarter: 2017Q1

REPORT INFORMATION
  Report Type: Spontaneous
  Country: US (occurrence: US)
  Receive Date: 20170220
  Receipt Date: 20170220
  Transmission Date: 20170428
  Serious: No
  Sender: FDA-Public Use
  Company Number: US-TEVA-696344USA

PATIENT
  Age: 51 Year
  Sex: Female

DRUGS (1)
  1. PROGESTERONE. [Suspect]
     Active Substance: PROGESTERONE

REACTIONS (4)
  - Insomnia [Unknown]
  - Memory impairment [Unknown]
  - Hot flush [Unknown]
  - Drug ineffective [Unknown]
